FAERS Safety Report 10917469 (Version 1)
Quarter: 2015Q1

REPORT INFORMATION
  Report Type: Spontaneous
  Country: US (occurrence: None)
  Receive Date: 20150312
  Receipt Date: 20150312
  Transmission Date: 20150721
  Serious: Yes (Hospitalization, Disabling, Other)
  Sender: FDA-Public Use
  Company Number: None

PATIENT
  Age: 50 Year
  Sex: Female

DRUGS (5)
  1. LEVOFLOXACIN 500 MG (GENERIC FOR LEVAQUIN) [Suspect]
     Active Substance: LEVOFLOXACIN
     Indication: PNEUMONIA
     Route: 048
     Dates: start: 20150116, end: 20150122
  2. MAGNESIUM [Concomitant]
     Active Substance: MAGNESIUM
  3. OSTEO BIFLEX 5-LOXIN (CHONDRORTIM/GLUCOSAMIHE) [Concomitant]
     Active Substance: CHONDROITIN SULFATE (BOVINE)\GLUCOSAMINE SULFATE
  4. DULERA 200 UG [Concomitant]
  5. PRO AIR HFA 90 MCG INHALER [Concomitant]

REACTIONS (17)
  - Discomfort [None]
  - Heart rate increased [None]
  - Tendon pain [None]
  - Eye pain [None]
  - Fatigue [None]
  - Asthenia [None]
  - Insomnia [None]
  - Vision blurred [None]
  - Vitreous floaters [None]
  - Pain [None]
  - Chest pain [None]
  - Activities of daily living impaired [None]
  - Paraesthesia [None]
  - Neuropathy peripheral [None]
  - Dyspnoea [None]
  - Hyperhidrosis [None]
  - Tremor [None]

NARRATIVE: CASE EVENT DATE: 20150122
